FAERS Safety Report 7077736-X (Version None)
Quarter: 2010Q4

REPORT INFORMATION
  Report Type: 
  Country: None (occurrence: None)
  Receive Date: 20101101
  Receipt Date: 20101019
  Transmission Date: 20110411
  Serious: Yes (Other)
  Sender: FDA-Public Use
  Company Number: NL-MYLANLABS-2010S1019196

PATIENT
  Age: 18 Year
  Sex: Female
  Weight: 85 kg

DRUGS (6)
  1. CITALOPRAM HYDROBROMIDE [Suspect]
     Indication: DEPRESSION
     Dates: start: 20000101
  2. CITALOPRAM HYDROBROMIDE [Suspect]
  3. CITALOPRAM HYDROBROMIDE [Suspect]
  4. CITALOPRAM HYDROBROMIDE [Suspect]
  5. CITALOPRAM HYDROBROMIDE [Suspect]
  6. NORDETTE-28 [Concomitant]
     Indication: PRODUCT USED FOR UNKNOWN INDICATION
     Dosage: VOLGENS SCHEMA OAC
     Dates: start: 19970101

REACTIONS (1)
  - RESTLESS LEGS SYNDROME [None]
